FAERS Safety Report 5579549-4 (Version None)
Quarter: 2007Q4

REPORT INFORMATION
  Report Type: 
  Country: None (occurrence: None)
  Receive Date: 20071130
  Receipt Date: 20070703
  Transmission Date: 20080405
  Serious: No
  Sender: FDA-Public Use
  Company Number: US200707001896

PATIENT
  Age: 52 Year
  Sex: Female
  Weight: 83.9 kg

DRUGS (2)
  1. BYETTA [Suspect]
     Indication: TYPE 2 DIABETES MELLITUS
     Dosage: 5 UG, 2/D ; 10 UG, 2/D
  2. GLUCOPHAGE [Concomitant]

REACTIONS (3)
  - ABDOMINAL PAIN UPPER [None]
  - ERUCTATION [None]
  - HICCUPS [None]
